FAERS Safety Report 8567762-3 (Version None)
Quarter: 2012Q3

REPORT INFORMATION
  Report Type: 
  Country: None (occurrence: None)
  Receive Date: 20120803
  Receipt Date: 20120727
  Transmission Date: 20120928
  Serious: Yes (Hospitalization)
  Sender: FDA-Public Use
  Company Number: JP-009507513-1207JPN012653

PATIENT

DRUGS (4)
  1. PEG-INTRON [Suspect]
     Dosage: 1.5MCG/KG
     Route: 058
     Dates: start: 20120607
  2. TELAVIC [Suspect]
     Route: 048
     Dates: start: 20120607
  3. REBETOL [Suspect]
     Route: 048
     Dates: start: 20120607
  4. TELAVIC [Suspect]
     Route: 048
     Dates: start: 20120620

REACTIONS (1)
  - ASCITES [None]
